FAERS Safety Report 8815407 (Version 1)
Quarter: 2012Q4

REPORT INFORMATION
  Report Type: 
  Country: AU (occurrence: AU)
  Receive Date: 20120928
  Receipt Date: 20120928
  Transmission Date: 20130627
  Serious: Yes (Other)
  Sender: FDA-Public Use
  Company Number: AU-ELI_LILLY_AND_COMPANY-AU201209004586

PATIENT
  Age: 66 None
  Sex: Male

DRUGS (9)
  1. BYETTA [Suspect]
     Indication: TYPE 2 DIABETES MELLITUS
     Dosage: 5 ug, bid
     Dates: start: 20120908
  2. LIPITOR [Concomitant]
     Indication: BLOOD CHOLESTEROL
     Dosage: UNK
  3. PARIET [Concomitant]
     Indication: GASTROOESOPHAGEAL REFLUX DISEASE
     Dosage: UNK
  4. PEXSIG [Concomitant]
     Dosage: UNK
  5. IMDUR [Concomitant]
     Indication: CARDIAC DISORDER
     Dosage: UNK
  6. NORVASC [Concomitant]
     Indication: CARDIAC DISORDER
     Dosage: UNK
  7. IKOREL [Concomitant]
     Indication: CARDIAC DISORDER
     Dosage: UNK
  8. ASPIRIN [Concomitant]
     Indication: CARDIAC DISORDER
     Dosage: UNK
  9. GLYADE [Concomitant]
     Indication: TYPE 2 DIABETES MELLITUS
     Dosage: 4 DF, qd

REACTIONS (6)
  - Loss of consciousness [Recovered/Resolved]
  - Presyncope [Recovered/Resolved]
  - Hypotension [Recovering/Resolving]
  - Blood glucose increased [Not Recovered/Not Resolved]
  - Nausea [Recovering/Resolving]
  - Fatigue [Recovering/Resolving]
